FAERS Safety Report 8249886-3 (Version None)
Quarter: 2012Q2

REPORT INFORMATION
  Report Type: 
  Country: None (occurrence: None)
  Receive Date: 20120402
  Receipt Date: 20120323
  Transmission Date: 20120825
  Serious: Yes (Hospitalization)
  Sender: FDA-Public Use
  Company Number: PHHY2012DE019681

PATIENT
  Sex: Female
  Weight: 91 kg

DRUGS (12)
  1. RAMIPRIL [Concomitant]
     Indication: CARDIAC DISORDER
     Dosage: 10 MG, PER DAY
     Route: 048
     Dates: start: 20010514
  2. VERAPAMIL [Concomitant]
     Indication: ARRHYTHMIA
     Dosage: 120 MG, PER DAY
     Route: 048
     Dates: start: 20101201
  3. LEVOTHYROXINE SODIUM [Concomitant]
     Dosage: 125 UG, PER DAY
     Route: 048
     Dates: start: 20081021
  4. ACTRAPHANE HM [Concomitant]
     Indication: DIABETES MELLITUS
     Dosage: 68 IU, PER DAY
     Route: 058
     Dates: start: 20010406
  5. ORAL ANTIDIABETICS [Concomitant]
     Indication: DIABETES MELLITUS
  6. DIURETICS [Concomitant]
  7. ACE INHIBITORS [Concomitant]
     Dates: start: 20100526
  8. PLATELET AGGREGATION INHIBITORS [Concomitant]
  9. PRAVASTATIN [Concomitant]
     Indication: BLOOD CHOLESTEROL
     Dosage: 10 MG, PER DAY
     Route: 048
     Dates: start: 20091222
  10. ANTIHYPERTENSIVE DRUGS [Concomitant]
  11. RASILEZ HCT [Suspect]
     Indication: HYPERTENSION
     Dosage: 150/12.5 MG PER DAY
     Route: 048
     Dates: start: 20030127, end: 20100526
  12. ASPIRIN [Concomitant]
     Indication: CARDIAC DISORDER
     Dosage: 100 MG, PER DAY
     Route: 048
     Dates: start: 20111004

REACTIONS (1)
  - LIVER ABSCESS [None]
